FAERS Safety Report 14077387 (Version 1)
Quarter: 2017Q4

REPORT INFORMATION
  Report Type: Spontaneous
  Country: US (occurrence: US)
  Receive Date: 20171012
  Receipt Date: 20171012
  Transmission Date: 20180321
  Serious: No
  Sender: FDA-Public Use
  Company Number: US-TEVA-788430ACC

PATIENT
  Age: 3 Year
  Sex: Female
  Weight: 19.07 kg

DRUGS (1)
  1. EQUATE IBUPROFEN CHILDRENS [Suspect]
     Active Substance: IBUPROFEN
     Dates: start: 20170711, end: 20170711

REACTIONS (3)
  - Lip swelling [Unknown]
  - Swelling [Unknown]
  - Erythema [Unknown]

NARRATIVE: CASE EVENT DATE: 20170712
